FAERS Safety Report 18199317 (Version 4)
Quarter: 2020Q3

REPORT INFORMATION
  Report Type: Spontaneous
  Country: PL (occurrence: PL)
  Receive Date: 20200826
  Receipt Date: 20200910
  Transmission Date: 20201103
  Serious: Yes (Other)
  Sender: FDA-Public Use
  Company Number: NVSC2020PL232924

PATIENT
  Age: 38 Year
  Sex: Male
  Weight: 105 kg

DRUGS (10)
  1. BUDESONIDE. [Concomitant]
     Active Substance: BUDESONIDE
     Indication: PRODUCT USED FOR UNKNOWN INDICATION
     Dosage: 320 UG (2 TIMES 160 UG)
     Route: 065
  2. FORMOTEROL [Concomitant]
     Active Substance: FORMOTEROL
     Dosage: UNK
     Route: 055
  3. BISOPROLOL [Suspect]
     Active Substance: BISOPROLOL
     Indication: HYPERTENSION
     Dosage: 5 MG, Q24H
     Route: 065
  4. VALSARTAN. [Concomitant]
     Active Substance: VALSARTAN
     Indication: HYPERTENSION
     Dosage: 160 MG, Q24H
     Route: 065
  5. FORMOTEROL [Concomitant]
     Active Substance: FORMOTEROL
     Dosage: 4.5 UNK, QD
     Route: 055
  6. ATORVASTATIN [Concomitant]
     Active Substance: ATORVASTATIN
     Indication: HYPERCHOLESTEROLAEMIA
     Dosage: 20 MG, Q24H
     Route: 065
  7. FORMOTEROL [Concomitant]
     Active Substance: FORMOTEROL
     Indication: PRODUCT USED FOR UNKNOWN INDICATION
     Dosage: 9 UG (2 TIMES 4.5 UG)
     Route: 065
  8. BUDESONIDE. [Concomitant]
     Active Substance: BUDESONIDE
     Dosage: UNK
     Route: 055
  9. BUDESONIDE. [Concomitant]
     Active Substance: BUDESONIDE
     Dosage: 160 UG (0.5 DAY)
     Route: 055
  10. FORMOTEROL [Concomitant]
     Active Substance: FORMOTEROL
     Dosage: 4.5 UG (0.5 DAY)
     Route: 055

REACTIONS (3)
  - Erectile dysfunction [Recovered/Resolved]
  - Palpitations [Recovered/Resolved]
  - Male sexual dysfunction [Recovered/Resolved]
